FAERS Safety Report 9298357 (Version 3)
Quarter: 2013Q4

REPORT INFORMATION
  Report Type: Spontaneous
  Country: US (occurrence: None)
  Receive Date: 20121227
  Receipt Date: 20131226
  Transmission Date: 20140711
  Serious: Yes (Other)
  Sender: FDA-Public Use
  Company Number: PHEH2012US018205

PATIENT
  Age: 30 Year
  Sex: Female
  Weight: 52.6 kg

DRUGS (5)
  1. AFINITOR [Suspect]
     Indication: TUBEROUS SCLEROSIS
     Route: 048
     Dates: start: 20120906
  2. TEGRETOL (CARBAMAZEPINE) [Concomitant]
  3. TOPAMAX (TOPIRAMATE) [Concomitant]
  4. KEPPRA (LEVETIRACETAM) [Concomitant]
  5. LACTOBACILLUS (LACTOBACILLUS ACIDOPHILUS) [Concomitant]

REACTIONS (13)
  - Increased appetite [None]
  - Menstrual disorder [None]
  - Blister [None]
  - Renal impairment [None]
  - Hepatic function abnormal [None]
  - Abdominal pain upper [None]
  - Headache [None]
  - Dry mouth [None]
  - White blood cell count decreased [None]
  - Rash [None]
  - Rash pruritic [None]
  - Herpes zoster [None]
  - Pain in extremity [None]
